FAERS Safety Report 8439231-2 (Version None)
Quarter: 2012Q2

REPORT INFORMATION
  Report Type: 
  Country: None (occurrence: None)
  Receive Date: 20120615
  Receipt Date: 20120609
  Transmission Date: 20120825
  Serious: Yes (Other)
  Sender: FDA-Public Use
  Company Number: PHHY2012MX050408

PATIENT
  Sex: Female

DRUGS (4)
  1. VIMPAT [Concomitant]
     Dosage: 0.5 DF, DAILY
     Dates: start: 20111101
  2. PEKAMERC [Concomitant]
     Dosage: UNK UKN, UNK
  3. EXELON [Suspect]
     Indication: DEMENTIA ALZHEIMER'S TYPE
     Dosage: 4.6 MG, QD
     Route: 062
     Dates: start: 20110801
  4. STALEVO 100 [Suspect]
     Indication: PARKINSON'S DISEASE
     Dosage: 2 DF, DAILY

REACTIONS (3)
  - CEREBRAL DISORDER [None]
  - MOVEMENT DISORDER [None]
  - APHASIA [None]
